FAERS Safety Report 24306955 (Version 1)
Quarter: 2024Q3

REPORT INFORMATION
  Report Type: Report from Study
  Country: US (occurrence: US)
  Receive Date: 20240911
  Receipt Date: 20240911
  Transmission Date: 20241016
  Serious: Yes (Hospitalization, Other)
  Sender: BAYER
  Company Number: US-BAYER-2024A105492

PATIENT
  Age: 80 Year
  Sex: Female
  Weight: 63.492 kg

DRUGS (14)
  1. ADEMPAS [Suspect]
     Active Substance: RIOCIGUAT
     Indication: Pulmonary arterial hypertension
     Dosage: UNK
     Route: 048
     Dates: start: 20230905
  2. ADEMPAS [Suspect]
     Active Substance: RIOCIGUAT
     Indication: Pulmonary arterial hypertension
     Dosage: 2 MG, TID
     Route: 048
  3. FUROSEMIDE [Concomitant]
     Active Substance: FUROSEMIDE
  4. OMEPRAZOLE [Concomitant]
     Active Substance: OMEPRAZOLE
  5. VITAMINS [Concomitant]
     Active Substance: VITAMINS
  6. MELATONIN [Concomitant]
     Active Substance: MELATONIN
  7. XARELTO [Concomitant]
     Active Substance: RIVAROXABAN
  8. CREON [Concomitant]
     Active Substance: PANCRELIPASE AMYLASE\PANCRELIPASE LIPASE\PANCRELIPASE PROTEASE
  9. ALBUTEROL SULFATE [Concomitant]
     Active Substance: ALBUTEROL SULFATE
  10. METOPROLOL SUCCINATE [Concomitant]
     Active Substance: METOPROLOL SUCCINATE
  11. FOLIC ACID [Concomitant]
     Active Substance: FOLIC ACID
  12. OXYGEN [Concomitant]
     Active Substance: OXYGEN
  13. B12 ACTIVE [Concomitant]
  14. ALBUTEROL SULFATE [Concomitant]
     Active Substance: ALBUTEROL SULFATE

REACTIONS (5)
  - Malaise [None]
  - Hypotension [Not Recovered/Not Resolved]
  - Dizziness [None]
  - Balance disorder [None]
  - Hypertension [None]

NARRATIVE: CASE EVENT DATE: 20240605
